FAERS Safety Report 8844230 (Version 2)
Quarter: 2013Q1

REPORT INFORMATION
  Report Type: Report from Study
  Country: JP (occurrence: JP)
  Receive Date: 20121016
  Receipt Date: 20130325
  Transmission Date: 20140127
  Serious: Yes (Other)
  Sender: FDA-Public Use
  Company Number: JP-VERTEX PHARMACEUTICAL INC.-2012-022755

PATIENT
  Age: 48 Year
  Sex: Male

DRUGS (21)
  1. VX-950 (TELAPREVIR) [Suspect]
     Indication: CHRONIC HEPATITIS C
     Dosage: 2250 MG, QD
     Route: 048
     Dates: start: 20120412, end: 20120510
  2. VX-950 (TELAPREVIR) [Suspect]
     Dosage: 1500 MG, QD
     Route: 048
     Dates: start: 20120511
  3. VX-950 (TELAPREVIR) [Suspect]
     Dosage: 1500 MG, QD
     Route: 048
     Dates: start: 20120526, end: 20120630
  4. REBETOL [Suspect]
     Indication: CHRONIC HEPATITIS C
     Dosage: 800 MG, QD
     Route: 048
     Dates: start: 20120412, end: 20120412
  5. REBETOL [Suspect]
     Dosage: 600 MG, QD
     Route: 048
     Dates: start: 20120413, end: 20120510
  6. REBETOL [Suspect]
     Dosage: 400 MG, QD
     Route: 048
     Dates: start: 20120511, end: 20120517
  7. REBETOL [Suspect]
     Dosage: 200 MG, QOD
     Route: 048
     Dates: start: 20120518
  8. REBETOL [Suspect]
     Dosage: 200 MG, QD
     Route: 048
     Dates: start: 20120629, end: 20120809
  9. REBETOL [Suspect]
     Dosage: 400 MG, QD
     Route: 048
     Dates: start: 20120810, end: 20120906
  10. REBETOL [Suspect]
     Dosage: 600 MG, QD
     Route: 048
     Dates: start: 20120907, end: 20120928
  11. PEGINTRON [Suspect]
     Indication: CHRONIC HEPATITIS C
     Dosage: 1.5 ?G/KG, QW
     Route: 058
     Dates: start: 20120412, end: 20120518
  12. PEGINTRON [Suspect]
     Dosage: 1.0 ?G/KG, QW
     Route: 058
     Dates: start: 20120525
  13. PEGINTRON [Suspect]
     Dosage: 1.5 ?G/KG, QW
     Route: 058
     Dates: end: 20120928
  14. AFTACH [Concomitant]
     Dosage: 1 DF, ONCE OR TWICE A DAY
     Route: 049
     Dates: start: 20120413, end: 20120418
  15. ISODINE GARGLE [Concomitant]
     Dosage: SEVERAL TIMES/DAY
     Route: 049
     Dates: start: 20120414, end: 20120426
  16. ALOSITOL [Concomitant]
     Dosage: 300 MG, QD
     Route: 048
     Dates: start: 20120518, end: 20120713
  17. CALONAL [Concomitant]
     Dosage: 300 MG, QD
     Route: 048
     Dates: start: 20120511
  18. LOXONIN [Concomitant]
     Dosage: 60 MG, QD
     Route: 048
     Dates: start: 20120706
  19. SELBEX [Concomitant]
     Dosage: 50 MG, QD
     Route: 048
     Dates: start: 20120706, end: 20120809
  20. HIRUDOID [Concomitant]
     Dosage: 100 G, QD
     Route: 061
     Dates: start: 20120726, end: 20120809
  21. HIRUDOID [Concomitant]
     Dosage: 100 G, QD
     Dates: start: 20120810, end: 20120906

REACTIONS (1)
  - Haemoglobin decreased [Not Recovered/Not Resolved]
